FAERS Safety Report 9472136 (Version 1)
Quarter: 2013Q3

REPORT INFORMATION
  Report Type: Report from Study
  Country: JP (occurrence: JP)
  Receive Date: 20130823
  Receipt Date: 20130823
  Transmission Date: 20140515
  Serious: Yes (Hospitalization)
  Sender: FDA-Public Use
  Company Number: JP-BRISTOL-MYERS SQUIBB COMPANY-19201532

PATIENT
  Age: 58 Year
  Sex: Male

DRUGS (7)
  1. PACLITAXEL [Suspect]
     Indication: NON-SMALL CELL LUNG CANCER
     Route: 042
     Dates: start: 20130618
  2. CARBOPLATIN [Suspect]
     Indication: NON-SMALL CELL LUNG CANCER
     Route: 042
     Dates: start: 20130618
  3. BLINDED: AMG 706 [Suspect]
     Indication: NON-SMALL CELL LUNG CANCER
     Route: 048
     Dates: start: 20130618, end: 20130625
  4. BLINDED: PLACEBO [Suspect]
     Indication: NON-SMALL CELL LUNG CANCER
  5. AZILSARTAN MEDOXOMIL [Concomitant]
     Indication: HYPERTENSION
     Route: 048
     Dates: start: 20130617, end: 20130624
  6. VOLTAREN [Concomitant]
     Indication: ARTHRALGIA
     Dates: start: 20130620
  7. LOXONIN [Concomitant]
     Indication: ARTHRALGIA
     Dates: start: 20130622

REACTIONS (1)
  - Cerebral infarction [Recovered/Resolved]
